FAERS Safety Report 5606881-8 (Version None)
Quarter: 2008Q1

REPORT INFORMATION
  Report Type: 
  Country: None (occurrence: None)
  Receive Date: 20080111
  Receipt Date: 20070914
  Transmission Date: 20080703
  Serious: Yes (Hospitalization, Other)
  Sender: FDA-Public Use
  Company Number: HQWYE120910OCT03

PATIENT
  Age: 54 Year
  Sex: Female
  Weight: 49.03 kg

DRUGS (3)
  1. PREMPRO [Suspect]
     Dosage: ORAL
     Route: 048
     Dates: end: 20001001
  2. MEDROXYPROGESTERONE [Suspect]
     Dosage: ORAL
     Route: 048
     Dates: start: 19950101
  3. PREMARIN [Suspect]
     Dates: start: 19950101

REACTIONS (1)
  - DEEP VEIN THROMBOSIS [None]
